FAERS Safety Report 4819261-X (Version None)
Quarter: 2005Q4

REPORT INFORMATION
  Report Type: 
  Country: None (occurrence: None)
  Receive Date: 20051103
  Receipt Date: 20051028
  Transmission Date: 20060501
  Serious: Yes (Hospitalization)
  Sender: FDA-Public Use
  Company Number: DE-BRISTOL-MYERS SQUIBB COMPANY-13161906

PATIENT
  Age: 57 Year
  Sex: Female

DRUGS (21)
  1. CYCLOPHOSPHAMIDE [Suspect]
     Indication: BREAST CANCER
     Dates: start: 20050926, end: 20050926
  2. TAXOL [Suspect]
     Indication: BREAST CANCER
     Dates: start: 20050804, end: 20050804
  3. EPIRUBICIN [Suspect]
     Indication: BREAST CANCER
     Dates: start: 20050623, end: 20050623
  4. METOCLOPRAMIDE [Concomitant]
     Dates: start: 20050526, end: 20050929
  5. DEXAMETHASONE [Concomitant]
     Dates: start: 20050526, end: 20050929
  6. NEULASTA [Concomitant]
     Route: 058
     Dates: start: 20050526, end: 20051007
  7. VITAFERRO [Concomitant]
     Dates: start: 20050526
  8. NEORECORMON [Concomitant]
     Dates: start: 20050526, end: 20050930
  9. TAZOBAC [Concomitant]
     Dates: start: 20050826, end: 20050908
  10. GENTAMICIN [Concomitant]
     Dates: start: 20050826
  11. DOXYCYCLINE [Concomitant]
     Dates: start: 20050908
  12. LYRICA [Concomitant]
     Route: 048
     Dates: start: 20050830
  13. CIPROBAY [Concomitant]
     Dates: start: 20050819
  14. DIFLUCAN [Concomitant]
     Dates: start: 20050828, end: 20050908
  15. PANTOZOL [Concomitant]
  16. CORTICOID [Concomitant]
     Route: 061
     Dates: start: 20050721, end: 20050803
  17. NEURONTIN [Concomitant]
     Dates: start: 20050721, end: 20050817
  18. UROMITEXAN [Concomitant]
     Dates: start: 20050818, end: 20050818
  19. AMPHO-MORONAL [Concomitant]
     Dates: start: 20050707
  20. IBUPROFEN [Concomitant]
     Dates: start: 20050721
  21. THYRONAJOD [Concomitant]

REACTIONS (1)
  - PYREXIA [None]
